FAERS Safety Report 11312718 (Version 1)
Quarter: 2015Q3

REPORT INFORMATION
  Report Type: Spontaneous
  Country: US (occurrence: US)
  Receive Date: 20150727
  Receipt Date: 20150727
  Transmission Date: 20151125
  Serious: No
  Sender: FDA-Public Use
  Company Number: US-ABBVIE-15P-163-1420335-00

PATIENT
  Age: 55 Year
  Sex: Female

DRUGS (1)
  1. SYNTHROID [Suspect]
     Active Substance: LEVOTHYROXINE SODIUM
     Indication: PRODUCT USED FOR UNKNOWN INDICATION
     Route: 065
     Dates: start: 200406

REACTIONS (10)
  - Fatigue [Unknown]
  - Depression [Unknown]
  - Rash [Unknown]
  - Swelling face [Unknown]
  - Lymphadenopathy [Unknown]
  - Eye swelling [Unknown]
  - Rash pruritic [Unknown]
  - Retching [Unknown]
  - Dysphagia [Unknown]
  - Urticaria [Unknown]

NARRATIVE: CASE EVENT DATE: 2014
